FAERS Safety Report 21058566 (Version 1)
Quarter: 2022Q3

REPORT INFORMATION
  Report Type: Report from Study
  Country: US (occurrence: US)
  Receive Date: 20220708
  Receipt Date: 20220708
  Transmission Date: 20221027
  Serious: No
  Sender: FDA-Public Use
  Company Number: US-IGSA-BIG0019453

PATIENT
  Age: 32 Year
  Sex: Male

DRUGS (3)
  1. GAMUNEX-C [Suspect]
     Active Substance: HUMAN IMMUNOGLOBULIN G
     Indication: Polyneuropathy
     Dosage: 70 GRAM, Q.4WK.
     Route: 042
     Dates: start: 20220430, end: 20220501
  2. GAMUNEX-C [Suspect]
     Active Substance: HUMAN IMMUNOGLOBULIN G
     Indication: Off label use
     Dosage: 70 GRAM, Q.4WK.
     Route: 042
     Dates: start: 20220529, end: 20220530
  3. GAMUNEX-C [Suspect]
     Active Substance: HUMAN IMMUNOGLOBULIN G
     Dosage: 35 GRAM, Q.4WK.
     Route: 042

REACTIONS (5)
  - Erythema [Unknown]
  - Rash erythematous [Unknown]
  - Rash papular [Unknown]
  - Product closure issue [Unknown]
  - Recalled product administered [Unknown]

NARRATIVE: CASE EVENT DATE: 20220430
